FAERS Safety Report 19514899 (Version 4)
Quarter: 2021Q3

REPORT INFORMATION
  Report Type: Report from Study
  Country: US (occurrence: US)
  Receive Date: 20210709
  Receipt Date: 20210917
  Transmission Date: 20211014
  Serious: Yes (Hospitalization)
  Sender: FDA-Public Use
  Company Number: US-DECIPHERA PHARMACEUTICALS LLC-2020-US-000609

PATIENT
  Age: 60 Year
  Sex: Female
  Weight: 72.6 kg

DRUGS (79)
  1. DCC?2618 [Suspect]
     Active Substance: RIPRETINIB
     Dosage: 100 MILLIGRAM, BID
     Route: 048
     Dates: start: 20200128, end: 20200206
  2. DCC?2618 [Suspect]
     Active Substance: RIPRETINIB
     Dosage: 150 MILLIGRAM, BID
     Route: 048
     Dates: start: 20201002, end: 20201018
  3. LORATADINE. [Concomitant]
     Active Substance: LORATADINE
     Indication: HYPERSENSITIVITY
     Dosage: 1 DOSAGE FORM = 1 TABLET, QD OR PRN
     Route: 048
     Dates: start: 20140422
  4. PREDNISONE. [Concomitant]
     Active Substance: PREDNISONE
     Indication: RHEUMATOID ARTHRITIS
     Dosage: 5 MILLIGRAM
     Route: 048
     Dates: start: 20171201
  5. TRIAMCINOLONE [Concomitant]
     Active Substance: TRIAMCINOLONE
     Indication: DRY SKIN
     Dosage: 0.1 PERCENT
     Route: 061
     Dates: start: 20190506
  6. AUGMENTIN [Concomitant]
     Active Substance: AMOXICILLIN\CLAVULANATE POTASSIUM
     Indication: CELLULITIS
     Dosage: 875 MILLIGRAM
     Route: 048
     Dates: start: 20201005, end: 20201111
  7. AUGMENTIN [Concomitant]
     Active Substance: AMOXICILLIN\CLAVULANATE POTASSIUM
     Indication: URINARY TRACT INFECTION
  8. DCC?2618 [Suspect]
     Active Substance: RIPRETINIB
     Dosage: 100 MILLIGRAM, AM (ONCE IN THE MORNING)
     Route: 048
     Dates: start: 20161011, end: 20161011
  9. DCC?2618 [Suspect]
     Active Substance: RIPRETINIB
     Dosage: 100 MILLIGRAM, BID
     Route: 048
     Dates: start: 20200221, end: 20200223
  10. DCC?2618 [Suspect]
     Active Substance: RIPRETINIB
     Dosage: 100 MILLIGRAM, QD
     Route: 048
     Dates: start: 20200420, end: 20200420
  11. DCC?2618 [Suspect]
     Active Substance: RIPRETINIB
     Dosage: 100 MILLIGRAM, QD
     Route: 048
     Dates: start: 20200910, end: 20200910
  12. MUPIROCIN. [Concomitant]
     Active Substance: MUPIROCIN
     Indication: WOUND
     Dosage: UNK
     Route: 061
     Dates: start: 20180403
  13. VANTIN [Concomitant]
     Active Substance: CEFPODOXIME PROXETIL
     Indication: URINARY TRACT INFECTION
     Dosage: 100 MILLIGRAM
     Route: 048
     Dates: start: 20200716, end: 20201028
  14. ONDANSETRON [Concomitant]
     Active Substance: ONDANSETRON
     Indication: NAUSEA
     Dosage: 8 MILLIGRAM
     Route: 042
     Dates: start: 20200905
  15. DCC?2618 [Suspect]
     Active Substance: RIPRETINIB
     Indication: GASTROINTESTINAL STROMAL TUMOUR
     Dosage: 150 MILLIGRAM, AM (ONCE IN THE MORNING)
     Route: 048
     Dates: start: 20161004, end: 20161004
  16. DCC?2618 [Suspect]
     Active Substance: RIPRETINIB
     Dosage: 100 MILLIGRAM, QD
     Route: 048
     Dates: start: 20200402, end: 20200402
  17. DCC?2618 [Suspect]
     Active Substance: RIPRETINIB
     Dosage: 100 MILLIGRAM, BID
     Route: 048
     Dates: start: 20200616, end: 20200707
  18. DCC?2618 [Suspect]
     Active Substance: RIPRETINIB
     Dosage: 100 MILLIGRAM, QD
     Route: 048
     Dates: start: 20200708, end: 20200708
  19. DCC?2618 [Suspect]
     Active Substance: RIPRETINIB
     Dosage: 100 MILLIGRAM, BID
     Route: 048
     Dates: start: 20200731, end: 20200809
  20. DCC?2618 [Suspect]
     Active Substance: RIPRETINIB
     Dosage: 150 MILLIGRAM, QD
     Route: 048
     Dates: start: 20201001, end: 20201001
  21. HYDROMORPHONE [Concomitant]
     Active Substance: HYDROMORPHONE
     Indication: PAIN
     Dosage: UNK
     Route: 048
     Dates: start: 20160913
  22. TESSALON [Concomitant]
     Active Substance: BENZONATATE
     Indication: COUGH
     Dosage: UNK
     Route: 048
     Dates: start: 20180921
  23. HYALO GYN [Concomitant]
     Indication: VULVOVAGINAL DRYNESS
     Dosage: UNK
     Route: 065
     Dates: start: 20180827
  24. SCOPOLAMINE [HYOSCINE] [Concomitant]
     Active Substance: SCOPOLAMINE
     Indication: NAUSEA
     Dosage: UNK
     Route: 062
     Dates: start: 20191230
  25. DCC?2618 [Suspect]
     Active Substance: RIPRETINIB
     Dosage: 100 MILLIGRAM, BID
     Route: 048
     Dates: start: 20200113, end: 20200123
  26. DCC?2618 [Suspect]
     Active Substance: RIPRETINIB
     Dosage: 100 MILLIGRAM, BID
     Route: 048
     Dates: start: 20200225, end: 20200322
  27. DCC?2618 [Suspect]
     Active Substance: RIPRETINIB
     Dosage: 100 MILLIGRAM, QD
     Route: 048
     Dates: start: 20200615, end: 20200615
  28. COMPAZINE [Concomitant]
     Active Substance: PROCHLORPERAZINE MALEATE
     Indication: NAUSEA
     Dosage: 10 MILLIGRAM
     Route: 048
     Dates: start: 20150223
  29. GABAPENTIN. [Concomitant]
     Active Substance: GABAPENTIN
     Indication: NEURALGIA
     Dosage: UNK
     Route: 048
     Dates: start: 20171204
  30. SYSTANE (HYPROMELLOSE 2910 (4000 MPA.S)) [Concomitant]
     Active Substance: HYPROMELLOSE 2910 (4000 MPA.S)
     Indication: DRY EYE
     Dosage: UNK
     Route: 047
     Dates: start: 20160929
  31. HYALO GYN [Concomitant]
     Indication: DYSPAREUNIA
  32. DCC?2618 [Suspect]
     Active Substance: RIPRETINIB
     Dosage: 100 MILLIGRAM, QD
     Route: 048
     Dates: start: 20200112, end: 20200112
  33. DCC?2618 [Suspect]
     Active Substance: RIPRETINIB
     Dosage: 100 MILLIGRAM, QD
     Route: 048
     Dates: start: 20200127, end: 20200127
  34. DCC?2618 [Suspect]
     Active Substance: RIPRETINIB
     Dosage: 100 MILLIGRAM, QD
     Route: 048
     Dates: start: 20200207, end: 20200207
  35. DCC?2618 [Suspect]
     Active Substance: RIPRETINIB
     Dosage: 100 MILLIGRAM, QD
     Route: 048
     Dates: start: 20200323, end: 20200323
  36. DCC?2618 [Suspect]
     Active Substance: RIPRETINIB
     Dosage: 100 MILLIGRAM, QD
     Route: 048
     Dates: start: 20200730, end: 20200730
  37. DCC?2618 [Suspect]
     Active Substance: RIPRETINIB
     Dosage: 100 MILLIGRAM, QD
     Route: 048
     Dates: start: 20200826, end: 20200826
  38. KLOR?CON [Concomitant]
     Active Substance: POTASSIUM CHLORIDE
     Indication: HYPOKALAEMIA
     Dosage: 10 MILLIEQUIVALENT
     Route: 048
     Dates: start: 20031008
  39. PLAQUENIL [Concomitant]
     Active Substance: HYDROXYCHLOROQUINE SULFATE
     Indication: RHEUMATOID ARTHRITIS
     Dosage: 200 MILLIGRAM, QD
     Route: 048
     Dates: start: 20141103
  40. BEPREVE [Concomitant]
     Active Substance: BEPOTASTINE BESILATE
     Indication: RHINITIS ALLERGIC
     Dosage: UNK
     Route: 047
     Dates: start: 20180505
  41. DCC?2618 [Suspect]
     Active Substance: RIPRETINIB
     Dosage: 100 MILLIGRAM, QD
     Route: 048
     Dates: start: 20200124, end: 20200124
  42. DCC?2618 [Suspect]
     Active Substance: RIPRETINIB
     Dosage: 100 MILLIGRAM, BID
     Route: 048
     Dates: start: 20200403, end: 20200419
  43. DCC?2618 [Suspect]
     Active Substance: RIPRETINIB
     Dosage: 100 MILLIGRAM, BID
     Route: 048
     Dates: start: 20200421, end: 20200517
  44. DCC?2618 [Suspect]
     Active Substance: RIPRETINIB
     Dosage: 100 MILLIGRAM, BID
     Route: 048
     Dates: start: 20200710, end: 20200712
  45. DCC?2618 [Suspect]
     Active Substance: RIPRETINIB
     Dosage: 100 MILLIGRAM, QD
     Route: 048
     Dates: start: 20200713, end: 20200713
  46. DCC?2618 [Suspect]
     Active Substance: RIPRETINIB
     Dosage: 100 MILLIGRAM, QD
     Route: 048
     Dates: start: 20200810, end: 20200810
  47. DCC?2618 [Suspect]
     Active Substance: RIPRETINIB
     Dosage: 100 MILLIGRAM, BID
     Route: 048
     Dates: start: 20200813, end: 20200825
  48. DCC?2618 [Suspect]
     Active Substance: RIPRETINIB
     Dosage: 100 MILLIGRAM, BID
     Route: 048
     Dates: start: 20200827, end: 20200909
  49. DCC?2618 [Suspect]
     Active Substance: RIPRETINIB
     Dosage: 150 MILLIGRAM, QD
     Route: 048
     Dates: start: 20201019, end: 20201019
  50. DCC?2618 [Suspect]
     Active Substance: RIPRETINIB
     Dosage: 100 MILLIGRAM, BID
     Route: 048
     Dates: start: 20201103, end: 20201103
  51. CALCIUM CARBONATE;ERGOCALCIFEROL [Concomitant]
     Active Substance: CALCIUM CARBONATE\ERGOCALCIFEROL
     Indication: HYPOCALCAEMIA
     Dosage: 500 MILLIGRAM, QD
     Route: 048
     Dates: start: 20151216
  52. MUCINEX [Concomitant]
     Active Substance: GUAIFENESIN
     Indication: RHINITIS ALLERGIC
     Dosage: 600 MILLIGRAM, BID PRN
     Route: 048
     Dates: start: 20140729
  53. RESTASIS [Concomitant]
     Active Substance: CYCLOSPORINE
     Indication: DRY EYE
     Dosage: 1 DROP
     Route: 047
     Dates: start: 20190927
  54. DCC?2618 [Suspect]
     Active Substance: RIPRETINIB
     Dosage: 100 MILLIGRAM, BID
     Route: 048
     Dates: start: 20191231, end: 20200111
  55. DCC?2618 [Suspect]
     Active Substance: RIPRETINIB
     Dosage: 100 MILLIGRAM, BID
     Route: 048
     Dates: start: 20200208, end: 20200219
  56. DCC?2618 [Suspect]
     Active Substance: RIPRETINIB
     Dosage: 100 MILLIGRAM, QD
     Route: 048
     Dates: start: 20200220, end: 20200220
  57. DCC?2618 [Suspect]
     Active Substance: RIPRETINIB
     Dosage: 100 MILLIGRAM, BID
     Route: 048
     Dates: start: 20200324, end: 20200401
  58. DCC?2618 [Suspect]
     Active Substance: RIPRETINIB
     Dosage: 100 MILLIGRAM, QD
     Route: 048
     Dates: start: 20200518, end: 20200518
  59. DCC?2618 [Suspect]
     Active Substance: RIPRETINIB
     Dosage: 100 MILLIGRAM, BID
     Route: 048
     Dates: start: 20200811, end: 20200811
  60. DCC?2618 [Suspect]
     Active Substance: RIPRETINIB
     Dosage: 100 MILLIGRAM, BID
     Route: 048
     Dates: start: 20200911, end: 20200916
  61. DCC?2618 [Suspect]
     Active Substance: RIPRETINIB
     Dosage: 150 MILLIGRAM, BID
     Route: 048
     Dates: start: 20200917, end: 20200930
  62. DCC?2618 [Suspect]
     Active Substance: RIPRETINIB
     Dosage: 100 MILLIGRAM, QD
     Route: 048
     Dates: start: 20201102, end: 20201102
  63. DCC?2618 [Suspect]
     Active Substance: RIPRETINIB
     Dosage: 100 MILLIGRAM, QD
     Route: 048
     Dates: start: 20201104, end: 20201104
  64. FLUTICASONE PROPIONATE. [Concomitant]
     Active Substance: FLUTICASONE PROPIONATE
     Indication: RHINITIS ALLERGIC
     Dosage: UNK
     Route: 045
     Dates: start: 20160125
  65. HYDRODIURIL [Concomitant]
     Active Substance: HYDROCHLOROTHIAZIDE
     Indication: HYPERTENSION
     Dosage: 25 MILLIGRAM
     Route: 048
     Dates: start: 20031008
  66. CETRIZINE [Concomitant]
     Active Substance: CETIRIZINE HYDROCHLORIDE
     Indication: RHINITIS ALLERGIC
     Dosage: 10 MILLIGRAM
     Route: 048
     Dates: start: 20140414
  67. TOCILIZUMAB. [Concomitant]
     Active Substance: TOCILIZUMAB
     Indication: RHEUMATOID ARTHRITIS
     Dosage: UNK
     Route: 030
     Dates: start: 20170601
  68. MAGNESIUM [Concomitant]
     Active Substance: MAGNESIUM
     Indication: MYALGIA
     Dosage: UNK
     Route: 048
     Dates: start: 20171106
  69. LOMOTIL [LOPERAMIDE HYDROCHLORIDE] [Concomitant]
     Active Substance: LOPERAMIDE HYDROCHLORIDE
     Indication: DIARRHOEA
     Dosage: 1 DOSAGE FORM = 2.5 ? 0.2 MILLIGRAM
     Route: 048
     Dates: start: 20181203
  70. AMLACTIN [Concomitant]
     Active Substance: AMMONIUM LACTATE
     Indication: DRY SKIN
     Dosage: UNK
     Route: 061
     Dates: start: 20190506
  71. DCC?2618 [Suspect]
     Active Substance: RIPRETINIB
     Dosage: 100 MILLIGRAM, BID
     Route: 048
     Dates: start: 20200125, end: 20200126
  72. DCC?2618 [Suspect]
     Active Substance: RIPRETINIB
     Dosage: 100 MILLIGRAM, QD
     Route: 048
     Dates: start: 20200224, end: 20200224
  73. DCC?2618 [Suspect]
     Active Substance: RIPRETINIB
     Dosage: 100 MILLIGRAM, BID
     Route: 048
     Dates: start: 20200519, end: 20200614
  74. DCC?2618 [Suspect]
     Active Substance: RIPRETINIB
     Dosage: 100 MILLIGRAM, QD
     Route: 048
     Dates: start: 20200709, end: 20200709
  75. DCC?2618 [Suspect]
     Active Substance: RIPRETINIB
     Dosage: 100 MILLIGRAM, BID
     Route: 048
     Dates: start: 20200714, end: 20200729
  76. DCC?2618 [Suspect]
     Active Substance: RIPRETINIB
     Dosage: 100 MILLIGRAM, QD
     Route: 048
     Dates: start: 20200812, end: 20200812
  77. DRISDOL [Concomitant]
     Active Substance: ERGOCALCIFEROL
     Indication: VITAMIN D DEFICIENCY
     Dosage: 50000 UT
     Route: 048
     Dates: start: 20140618
  78. LEVOTHYROXINE. [Concomitant]
     Active Substance: LEVOTHYROXINE
     Indication: HYPOTHYROIDISM
     Dosage: UNK
     Route: 048
     Dates: start: 20021119
  79. IMODIUM [Concomitant]
     Active Substance: LOPERAMIDE HYDROCHLORIDE
     Indication: DIARRHOEA
     Dosage: UNK
     Route: 065
     Dates: start: 20180813

REACTIONS (2)
  - Pain [Recovered/Resolved]
  - Peripheral swelling [Recovered/Resolved]

NARRATIVE: CASE EVENT DATE: 20201026
